FAERS Safety Report 6130594-X (Version None)
Quarter: 2009Q1

REPORT INFORMATION
  Report Type: 
  Country: None (occurrence: None)
  Receive Date: 20090325
  Receipt Date: 20090316
  Transmission Date: 20090719
  Serious: Yes (Other)
  Sender: FDA-Public Use
  Company Number: GB-RANBAXY-2009RR-22815

PATIENT
  Age: 45 Year
  Sex: Female

DRUGS (5)
  1. CLARITHROMYCIN [Suspect]
     Indication: HELICOBACTER INFECTION
     Dosage: 250 MG, BID
     Route: 048
     Dates: start: 20090216
  2. CHAMPIX [Suspect]
     Indication: SMOKING CESSATION THERAPY
     Dosage: 1 MG, BID
     Route: 048
     Dates: start: 20090201
  3. METRONIDAZOLE [Concomitant]
     Indication: HELICOBACTER INFECTION
     Dosage: 400 MG, BID
     Route: 048
     Dates: start: 20090216
  4. OMEPRAZOLE [Concomitant]
     Indication: HELICOBACTER INFECTION
     Dosage: 20 MG, QD
     Route: 048
     Dates: start: 20090216
  5. PREMARIN [Concomitant]
     Indication: HORMONE REPLACEMENT THERAPY
     Dosage: 0.625 MG, QD
     Route: 048
     Dates: start: 20080717

REACTIONS (5)
  - GLOSSITIS [None]
  - ORAL CANDIDIASIS [None]
  - ORAL HERPES [None]
  - STOMATITIS [None]
  - TONGUE DISORDER [None]
